FAERS Safety Report 18444691 (Version 1)
Quarter: 2020Q4

REPORT INFORMATION
  Report Type: Spontaneous
  Country: FR (occurrence: FR)
  Receive Date: 20201030
  Receipt Date: 20201030
  Transmission Date: 20210114
  Serious: Yes (Hospitalization)
  Sender: FDA-Public Use
  Company Number: FR-MYLANLABS-2020M1089716

PATIENT
  Age: 34 Year
  Sex: Female

DRUGS (3)
  1. CREATINE [Interacting]
     Active Substance: CREATINE
     Indication: PRODUCT USED FOR UNKNOWN INDICATION
     Dosage: CHRONIC HIDDEN DAILY CONSUMPTION WAS EVALUATED TO BE 40-50G
     Route: 048
  2. RANITIDINE. [Interacting]
     Active Substance: RANITIDINE
     Indication: ANTACID THERAPY
     Dosage: 300 MILLIGRAM, QD
     Route: 048
  3. ESOMEPRAZOLE. [Suspect]
     Active Substance: ESOMEPRAZOLE MAGNESIUM
     Indication: ANTACID THERAPY
     Dosage: 40 MILLIGRAM, QD
     Route: 048

REACTIONS (4)
  - Condition aggravated [Recovering/Resolving]
  - Drug interaction [Recovering/Resolving]
  - Blood creatinine increased [Recovering/Resolving]
  - Metabolic acidosis [Unknown]

NARRATIVE: CASE EVENT DATE: 2018
